FAERS Safety Report 8365921-6 (Version None)
Quarter: 2012Q2

REPORT INFORMATION
  Report Type: 
  Country: None (occurrence: None)
  Receive Date: 20120515
  Receipt Date: 20120515
  Transmission Date: 20120825
  Serious: Yes (Hospitalization, Other)
  Sender: FDA-Public Use
  Company Number: None

PATIENT
  Age: 51 Year
  Sex: Female
  Weight: 90.7194 kg

DRUGS (1)
  1. CRESTOR [Suspect]
     Indication: BLOOD CHOLESTEROL INCREASED
     Dosage: 1 TABLET DAILY PO
     Route: 048
     Dates: start: 20120123, end: 20120510

REACTIONS (4)
  - STAPHYLOCOCCAL INFECTION [None]
  - NO THERAPEUTIC RESPONSE [None]
  - APPARENT LIFE THREATENING EVENT [None]
  - IMPAIRED HEALING [None]
